FAERS Safety Report 7782758-7 (Version None)
Quarter: 2011Q3

REPORT INFORMATION
  Report Type: 
  Country: None (occurrence: None)
  Receive Date: 20110928
  Receipt Date: 20110926
  Transmission Date: 20111222
  Serious: Yes (Other)
  Sender: FDA-Public Use
  Company Number: US-PFIZER INC-2011229270

PATIENT
  Sex: Male
  Weight: 70.3 kg

DRUGS (8)
  1. TOPROL-XL [Concomitant]
     Dosage: UNK
  2. MULTI-VITAMINS [Concomitant]
     Dosage: UNK
  3. TORISEL [Suspect]
     Dosage: 20 MG, WEEKLY
     Route: 042
     Dates: start: 20110926
  4. ACETYLSALICYLIC ACID [Concomitant]
     Dosage: UNK
  5. MIRAPEX [Concomitant]
     Dosage: UNK
  6. PAXIL [Concomitant]
     Dosage: UNK
  7. COMPAZINE [Concomitant]
     Dosage: UNK
  8. TORISEL [Suspect]
     Indication: RENAL CELL CARCINOMA
     Dosage: 25 MG, WEEKLY
     Route: 042
     Dates: start: 20110831, end: 20110926

REACTIONS (2)
  - TOXICITY TO VARIOUS AGENTS [None]
  - EXTRAVASATION [None]
